FAERS Safety Report 25959298 (Version 1)
Quarter: 2025Q4

REPORT INFORMATION
  Report Type: Report from Study
  Country: CA (occurrence: CA)
  Receive Date: 20251025
  Receipt Date: 20251025
  Transmission Date: 20260117
  Serious: Yes (Death)
  Sender: CSL BEHRING
  Company Number: CA-BEH-2025207308

PATIENT
  Age: 85 Year
  Sex: Female
  Weight: 60.781 kg

DRUGS (2)
  1. HIZENTRA [Suspect]
     Active Substance: HUMAN IMMUNOGLOBULIN G
     Indication: Secondary immunodeficiency
     Dosage: 5 G, QW
     Route: 058
     Dates: start: 20230606
  2. RITUXIMAB [Concomitant]
     Active Substance: RITUXIMAB

REACTIONS (4)
  - Death [Fatal]
  - Mobility decreased [Unknown]
  - Asthenia [Unknown]
  - Inappropriate schedule of product administration [Unknown]
